FAERS Safety Report 4456682-1 (Version None)
Quarter: 2004Q3

REPORT INFORMATION
  Report Type: 
  Country: None (occurrence: None)
  Receive Date: 20040921
  Receipt Date: 20040908
  Transmission Date: 20050211
  Serious: Yes (Hospitalization)
  Sender: FDA-Public Use
  Company Number: 2004058666

PATIENT
  Age: 53 Year
  Sex: Female

DRUGS (9)
  1. LIPITOR [Suspect]
     Indication: HYPERCHOLESTEROLAEMIA
     Dosage: 10 MG (1 IN 1 D), ORAL
     Route: 048
     Dates: start: 20030612, end: 20040723
  2. DRUG, UNSPECIFIED (DRUG, UNSPECIFIED) [Suspect]
     Indication: ILL-DEFINED DISORDER
     Dates: start: 20031216, end: 20031216
  3. ACARBOSE (ACARBOSE) [Concomitant]
  4. TELMISARTAN (TELMISARTAN) [Concomitant]
  5. LANSOPRAZOLE [Concomitant]
  6. POLAPREZINC (POLAPREZINC) [Concomitant]
  7. ECABET (ECABET) [Concomitant]
  8. NIZATIDINE [Concomitant]
  9. URSODEOXYCHOLIC ACID (URSODEOXYCHOLIC ACID) [Concomitant]

REACTIONS (17)
  - ALANINE AMINOTRANSFERASE INCREASED [None]
  - ASPARTATE AMINOTRANSFERASE INCREASED [None]
  - BLOOD ALBUMIN INCREASED [None]
  - BLOOD ALKALINE PHOSPHATASE INCREASED [None]
  - BLOOD CHOLESTEROL INCREASED [None]
  - BLOOD GLUCOSE INCREASED [None]
  - BLOOD LACTATE DEHYDROGENASE INCREASED [None]
  - BLOOD PRESSURE INCREASED [None]
  - GAMMA-GLUTAMYLTRANSFERASE INCREASED [None]
  - GASTRIC ULCER [None]
  - GLUCOSE URINE PRESENT [None]
  - HAEMATEMESIS [None]
  - HAEMATOCRIT DECREASED [None]
  - HAEMOGLOBIN DECREASED [None]
  - HEPATIC FUNCTION ABNORMAL [None]
  - LYMPHOCYTE PERCENTAGE INCREASED [None]
  - RED BLOOD CELL COUNT DECREASED [None]
